FAERS Safety Report 10327426 (Version 4)
Quarter: 2015Q2

REPORT INFORMATION
  Report Type: Spontaneous
  Country: TR (occurrence: TR)
  Receive Date: 20140721
  Receipt Date: 20150403
  Transmission Date: 20150821
  Serious: Yes (Hospitalization, Other)
  Sender: FDA-Public Use
  Company Number: TR-AMGEN INC.-TURSP2014036163

PATIENT
  Age: 36 Year
  Sex: Female
  Weight: 77.96 kg

DRUGS (4)
  1. ENBREL [Suspect]
     Active Substance: ETANERCEPT
     Indication: ANKYLOSING SPONDYLITIS
     Dosage: 50 MG, WEEKLY
     Route: 058
     Dates: start: 20140414, end: 20140421
  2. ENBREL [Suspect]
     Active Substance: ETANERCEPT
     Dosage: 50 MG, WEEKLY
     Route: 058
     Dates: start: 2014, end: 20140703
  3. ENBREL [Suspect]
     Active Substance: ETANERCEPT
     Dosage: 50 MG, WEEKLY
     Route: 058
     Dates: start: 2014, end: 201502
  4. METHOTREXATE [Concomitant]
     Active Substance: METHOTREXATE
     Dosage: UNK, WEEKLY

REACTIONS (11)
  - Hypertension [Unknown]
  - Memory impairment [Not Recovered/Not Resolved]
  - Lung infection [Recovered/Resolved]
  - Blood pressure decreased [Not Recovered/Not Resolved]
  - Pain in extremity [Recovered/Resolved]
  - Vitamin B12 decreased [Not Recovered/Not Resolved]
  - Inflammation [Unknown]
  - Tooth infection [Not Recovered/Not Resolved]
  - Pilonidal cyst [Unknown]
  - Musculoskeletal pain [Recovered/Resolved]
  - Hypoaesthesia [Recovered/Resolved]

NARRATIVE: CASE EVENT DATE: 2014
